FAERS Safety Report 18708746 (Version 3)
Quarter: 2021Q1

REPORT INFORMATION
  Report Type: Report from Study
  Country: US (occurrence: US)
  Receive Date: 20210106
  Receipt Date: 20210303
  Transmission Date: 20210419
  Serious: Yes (Other)
  Sender: FDA-Public Use
  Company Number: NVSC2020US345079

PATIENT
  Sex: Male

DRUGS (2)
  1. ENTRESTO [Suspect]
     Active Substance: SACUBITRIL\VALSARTAN
     Indication: CARDIAC FAILURE
     Dosage: 50 MG, QID (24/26 MG)
     Route: 048
  2. ENTRESTO [Suspect]
     Active Substance: SACUBITRIL\VALSARTAN
     Indication: CARDIAC FAILURE CHRONIC
     Dosage: 100 MG, UNKNOWN(49/51MG)
     Route: 048
     Dates: start: 20201228

REACTIONS (6)
  - Cardiac dysfunction [Unknown]
  - Pain [Unknown]
  - Arrhythmia [Unknown]
  - General physical health deterioration [Unknown]
  - Heart rate decreased [Unknown]
  - Inappropriate schedule of product administration [Unknown]
